FAERS Safety Report 11513428 (Version 1)
Quarter: 2015Q3

REPORT INFORMATION
  Report Type: Spontaneous
  Country: US (occurrence: US)
  Receive Date: 20150916
  Receipt Date: 20150916
  Transmission Date: 20151125
  Serious: No
  Sender: FDA-Public Use
  Company Number: US-BIOGENIDEC-2015BI125670

PATIENT
  Age: 35 Year
  Sex: Male

DRUGS (8)
  1. TECFIDERA [Suspect]
     Active Substance: DIMETHYL FUMARATE
     Indication: MULTIPLE SCLEROSIS
     Route: 048
     Dates: start: 20131203
  2. DILANTIN [Concomitant]
     Active Substance: PHENYTOIN
  3. BACLOFEN. [Concomitant]
     Active Substance: BACLOFEN
  4. DESMOPRESSIN [Concomitant]
     Active Substance: DESMOPRESSIN
  5. KEPPRA [Concomitant]
     Active Substance: LEVETIRACETAM
  6. MYBERTRIQ [Concomitant]
  7. TEGRETOL [Concomitant]
     Active Substance: CARBAMAZEPINE
  8. CARBATROL [Concomitant]
     Active Substance: CARBAMAZEPINE

REACTIONS (2)
  - Flushing [Unknown]
  - Drug administration error [Unknown]

NARRATIVE: CASE EVENT DATE: 20150912
